FAERS Safety Report 23550803 (Version 2)
Quarter: 2024Q1

REPORT INFORMATION
  Report Type: Report from Study
  Country: KR (occurrence: KR)
  Receive Date: 20240221
  Receipt Date: 20240320
  Transmission Date: 20240409
  Serious: Yes (Hospitalization, Other)
  Sender: FDA-Public Use
  Company Number: KR-ABBVIE-5646145

PATIENT
  Age: 72 Year
  Sex: Male
  Weight: 67 kg

DRUGS (27)
  1. VENCLEXTA [Suspect]
     Active Substance: VENETOCLAX
     Indication: Acute myeloid leukaemia
     Route: 048
     Dates: start: 20231129
  2. VENCLEXTA [Suspect]
     Active Substance: VENETOCLAX
     Indication: Acute myeloid leukaemia
     Route: 048
     Dates: start: 20230905, end: 20230905
  3. VENCLEXTA [Suspect]
     Active Substance: VENETOCLAX
     Indication: Acute myeloid leukaemia
     Route: 048
     Dates: start: 20230907, end: 20231122
  4. VENCLEXTA [Suspect]
     Active Substance: VENETOCLAX
     Indication: Acute myeloid leukaemia
     Route: 048
     Dates: start: 20230906, end: 20230906
  5. VENCLEXTA [Suspect]
     Active Substance: VENETOCLAX
     Indication: Acute myeloid leukaemia
     Route: 048
     Dates: start: 20230904, end: 20230904
  6. AVODART [Concomitant]
     Active Substance: DUTASTERIDE
     Indication: Benign prostatic hyperplasia
     Dosage: SC 0.5 MG
     Route: 048
     Dates: start: 20230915
  7. ALLOPURINOL [Concomitant]
     Active Substance: ALLOPURINOL
     Indication: Prophylaxis
     Dosage: 100 MG
     Route: 048
     Dates: start: 20230901, end: 20230910
  8. ALLOPURINOL [Concomitant]
     Active Substance: ALLOPURINOL
     Indication: Prophylaxis
     Dosage: TIME INTERVAL: 0.33333333 DAYS: 100 MG
     Route: 048
     Dates: start: 20230901, end: 20230910
  9. DIOVAN [Concomitant]
     Active Substance: VALSARTAN
     Indication: Hypertension
     Dosage: 160 MG
     Route: 048
  10. VIZADAKIN [Concomitant]
     Indication: Acute myeloid leukaemia
     Route: 058
     Dates: start: 20230904
  11. TENELIGLIPTIN [Concomitant]
     Active Substance: TENELIGLIPTIN
     Indication: Diabetes mellitus
     Dosage: 20 MG
     Route: 048
  12. PROPACETAMOL HYDROCHLORIDE [Concomitant]
     Active Substance: PROPACETAMOL HYDROCHLORIDE
     Indication: Pyrexia
     Dosage: TIME INTERVAL: AS NECESSARY
     Route: 042
     Dates: start: 20230901, end: 20230907
  13. DUTASTERIDE\TAMSULOSIN [Concomitant]
     Active Substance: DUTASTERIDE\TAMSULOSIN
     Indication: Benign prostatic hyperplasia
     Route: 048
     Dates: start: 20240207
  14. DUTASTERIDE\TAMSULOSIN [Concomitant]
     Active Substance: DUTASTERIDE\TAMSULOSIN
     Indication: Benign prostatic hyperplasia
     Route: 048
     Dates: start: 20230904, end: 20230914
  15. NOXAFIL [Concomitant]
     Active Substance: POSACONAZOLE
     Indication: Infection prophylaxis
     Dosage: 100 MG
     Route: 048
     Dates: start: 20230909, end: 20231004
  16. MIRABEGRON [Concomitant]
     Active Substance: MIRABEGRON
     Indication: Benign prostatic hyperplasia
     Dosage: 50 MG
     Route: 048
     Dates: start: 20230908, end: 20230915
  17. LEVOFLOXACIN [Concomitant]
     Active Substance: LEVOFLOXACIN
     Indication: Infection prophylaxis
     Dosage: 500 MG
     Route: 048
     Dates: start: 20230915, end: 20231017
  18. LEVOFLOXACIN [Concomitant]
     Active Substance: LEVOFLOXACIN
     Indication: Infection prophylaxis
     Dosage: 500 MG
     Route: 048
     Dates: start: 20231027, end: 20231106
  19. LEVOFLOXACIN [Concomitant]
     Active Substance: LEVOFLOXACIN
     Indication: Infection prophylaxis
     Dosage: 500 MG
     Route: 048
     Dates: start: 20231129, end: 20240112
  20. CRESTOR [Concomitant]
     Active Substance: ROSUVASTATIN CALCIUM
     Indication: Dyslipidaemia
     Dosage: 10 MG
     Route: 048
  21. DIABEX [Concomitant]
     Active Substance: METFORMIN HYDROCHLORIDE
     Indication: Diabetes mellitus
     Route: 048
  22. RENEXIN [Concomitant]
     Indication: Hypertension
     Route: 048
  23. DICHLOZID [Concomitant]
     Indication: Hypertension
     Dosage: 25 MG
     Route: 048
  24. TAZOPERAN [Concomitant]
     Indication: Pyrexia
     Dosage: 4.5 G
     Route: 042
     Dates: start: 20230901, end: 20230913
  25. GLUCOPHAGE [Concomitant]
     Active Substance: METFORMIN HYDROCHLORIDE
     Indication: Diabetes mellitus
     Dosage: 1000 MG
     Route: 048
  26. METOCLOPRAMIDE HYDROCHLORIDE [Concomitant]
     Active Substance: METOCLOPRAMIDE HYDROCHLORIDE
     Indication: Nausea
     Dosage: PRN
     Route: 048
     Dates: start: 20230927
  27. MEGACE F [Concomitant]
     Indication: Decreased appetite
     Route: 048
     Dates: start: 20231101

REACTIONS (1)
  - Acute kidney injury [Recovered/Resolved]

NARRATIVE: CASE EVENT DATE: 20231102
